FAERS Safety Report 16870048 (Version 1)
Quarter: 2019Q3

REPORT INFORMATION
  Report Type: Spontaneous
  Country: FR (occurrence: FR)
  Receive Date: 20190930
  Receipt Date: 20190930
  Transmission Date: 20191005
  Serious: Yes (Other)
  Sender: FDA-Public Use
  Company Number: FR-MYLANLABS-2019M1090422

PATIENT
  Age: 39 Year
  Sex: Male
  Weight: 86 kg

DRUGS (7)
  1. TRAMADOL. [Suspect]
     Active Substance: TRAMADOL
     Indication: CLUSTER HEADACHE
     Dosage: TRAMADOL LP 200MG JUSQU^? 9 CP PAR PRISE
     Route: 048
     Dates: start: 2013
  2. TEGRETOL [Suspect]
     Active Substance: CARBAMAZEPINE
     Indication: CLUSTER HEADACHE
     Dosage: 800 MILLIGRAM, QD
     Route: 048
     Dates: start: 2013
  3. BACLOFENE [Concomitant]
     Active Substance: BACLOFEN
     Indication: ALCOHOLISM
     Dosage: BACLOFENE 10MG
     Route: 048
     Dates: start: 201209
  4. PREGABALIN. [Suspect]
     Active Substance: PREGABALIN
     Indication: CLUSTER HEADACHE
     Dosage: 600 MILLIGRAM, QD
     Route: 048
     Dates: start: 2013
  5. COCAINE [Suspect]
     Active Substance: COCAINE
     Indication: PRODUCT USED FOR UNKNOWN INDICATION
     Dosage: UNK
     Route: 045
     Dates: start: 201506
  6. CODOLIPRANE [Suspect]
     Active Substance: ACETAMINOPHEN\CODEINE PHOSPHATE
     Indication: PRODUCT USED FOR UNKNOWN INDICATION
     Dosage: 10 DOSAGE FORM, QD
     Route: 048
     Dates: start: 201212, end: 2013
  7. ALCOOL [Suspect]
     Active Substance: ALCOHOL
     Indication: PRODUCT USED FOR UNKNOWN INDICATION
     Dosage: UNK
     Dates: start: 1996

REACTIONS (3)
  - Trigeminal neuralgia [Not Recovered/Not Resolved]
  - Drug abuse [Not Recovered/Not Resolved]
  - Cluster headache [Not Recovered/Not Resolved]

NARRATIVE: CASE EVENT DATE: 1996
